FAERS Safety Report 5802208-7 (Version None)
Quarter: 2008Q3

REPORT INFORMATION
  Report Type: 
  Country: None (occurrence: None)
  Receive Date: 20080707
  Receipt Date: 20080625
  Transmission Date: 20090109
  Serious: Yes (Hospitalization)
  Sender: FDA-Public Use
  Company Number: GB-PFIZER INC-2008044788

PATIENT
  Sex: Female
  Weight: 82 kg

DRUGS (2)
  1. SU-011,248 [Suspect]
     Indication: BREAST CANCER
     Route: 048
  2. CAPECITABINE [Suspect]
     Indication: BREAST CANCER
     Route: 048

REACTIONS (1)
  - DISEASE PROGRESSION [None]
